FAERS Safety Report 5574240-2 (Version None)
Quarter: 2007Q4

REPORT INFORMATION
  Report Type: 
  Country: None (occurrence: None)
  Receive Date: 20071221
  Receipt Date: 20071212
  Transmission Date: 20080405
  Serious: Yes (Hospitalization)
  Sender: FDA-Public Use
  Company Number: 2007EN000300

PATIENT
  Age: 43 Year
  Sex: Male
  Weight: 79.8331 kg

DRUGS (6)
  1. OPANA [Suspect]
     Indication: DRUG USE FOR UNKNOWN INDICATION
     Dosage: 10 MG; PRN; PO
     Route: 048
     Dates: start: 20071127, end: 20070101
  2. ARTHROTEC /00372302/ [Concomitant]
  3. NEURONTIN [Concomitant]
  4. METOPROLOL TARTRATE [Concomitant]
  5. LUNESTA [Concomitant]
  6. ASPIRIN [Concomitant]

REACTIONS (1)
  - CONVULSION [None]
